FAERS Safety Report 5277259-4 (Version None)
Quarter: 2007Q1

REPORT INFORMATION
  Report Type: 
  Country: None (occurrence: None)
  Receive Date: 20061213
  Receipt Date: 20060712
  Transmission Date: 20070707
  Serious: No
  Sender: FDA-Public Use
  Company Number: 2006UW14313

PATIENT
  Age: 70 Year
  Sex: Male

DRUGS (7)
  1. SEROQUEL [Suspect]
  2. REQUIP [Suspect]
     Indication: PARKINSON'S DISEASE
     Dates: start: 20060323, end: 20060522
  3. ZOCOR [Concomitant]
  4. NIFEDIPINE [Concomitant]
  5. ASPIRIN [Concomitant]
  6. ATOPRILOL [Concomitant]
  7. AMANTA [Concomitant]

REACTIONS (4)
  - CEREBROVASCULAR ACCIDENT [None]
  - HALLUCINATION, VISUAL [None]
  - HYPOTENSION [None]
  - INSOMNIA [None]
